FAERS Safety Report 16155310 (Version 1)
Quarter: 2019Q2

REPORT INFORMATION
  Report Type: Other
  Country: FR (occurrence: FR)
  Receive Date: 20190403
  Receipt Date: 20190403
  Transmission Date: 20190711
  Serious: Yes (Life-Threatening)
  Sender: FDA-Public Use
  Company Number: FR-CELLTRION INC.-2019FR019908

PATIENT

DRUGS (8)
  1. NOCTAMIDE [Concomitant]
     Active Substance: LORMETAZEPAM
     Dosage: UNK
     Route: 048
  2. HALDOL [Concomitant]
     Active Substance: HALOPERIDOL
     Dosage: UNK
     Route: 048
  3. TERBUTALINE [Concomitant]
     Active Substance: TERBUTALINE
     Dosage: UNK
     Route: 055
  4. NIPENT [Suspect]
     Active Substance: PENTOSTATIN
     Indication: HAIRY CELL LEUKAEMIA
     Dosage: 8 MG, 1 CYCLE
     Route: 042
     Dates: start: 20181217
  5. PARKINANE [Concomitant]
     Active Substance: TRIHEXYPHENIDYL HYDROCHLORIDE
     Dosage: UNK
     Route: 048
  6. EFFEXOR [Concomitant]
     Active Substance: VENLAFAXINE HYDROCHLORIDE
     Dosage: UNK
     Route: 048
  7. KEPPRA [Concomitant]
     Active Substance: LEVETIRACETAM
     Dosage: UNK
     Route: 048
  8. RITUXIMAB (UNKNOWN) [Suspect]
     Active Substance: RITUXIMAB
     Indication: HAIRY CELL LEUKAEMIA
     Dosage: 750 MG, DAILY
     Route: 042
     Dates: start: 20181217

REACTIONS (5)
  - Loss of consciousness [Recovered/Resolved]
  - Hypotension [Recovered/Resolved]
  - Pallor [Recovered/Resolved]
  - Dyspnoea [Recovered/Resolved]
  - Product use in unapproved indication [Unknown]

NARRATIVE: CASE EVENT DATE: 20190207
